FAERS Safety Report 23521094 (Version 1)
Quarter: 2024Q1

REPORT INFORMATION
  Report Type: 
  Country: None (occurrence: None)
  Receive Date: 20240214
  Receipt Date: 20240214
  Transmission Date: 20240410
  Serious: No
  Sender: FDA-Public Use
  Company Number: US-ROCHE-3449632

PATIENT
  Weight: 15.1 kg

DRUGS (1)
  1. EVRYSDI [Suspect]
     Active Substance: RISDIPLAM

REACTIONS (8)
  - Parainfluenzae virus infection [None]
  - Respirovirus test positive [None]
  - Respiratory distress [None]
  - Oxygen saturation decreased [None]
  - Gastrostomy tube site complication [None]
  - Catheter site haemorrhage [None]
  - COVID-19 [None]
  - Heart rate increased [None]

NARRATIVE: CASE EVENT DATE: 20230709
